FAERS Safety Report 5331552-5 (Version None)
Quarter: 2007Q2

REPORT INFORMATION
  Report Type: 
  Country: None (occurrence: None)
  Receive Date: 20070522
  Receipt Date: 20070510
  Transmission Date: 20071010
  Serious: Yes (Hospitalization)
  Sender: FDA-Public Use
  Company Number: PFIZER INC-2007023265

PATIENT
  Sex: Female

DRUGS (7)
  1. SUTENT [Suspect]
     Indication: MYELODYSPLASTIC SYNDROME
     Route: 048
     Dates: start: 20061107, end: 20061120
  2. ATACAND [Concomitant]
  3. VITAMIN CAP [Concomitant]
     Dosage: TEXT:1 TAB
  4. CALCIUM MAGNESIUM ZINC [Concomitant]
     Dosage: TEXT:1 TAB
  5. PYRIDOXINE HYDROCHLORIDE [Concomitant]
  6. CYANOCOBALAMIN [Concomitant]
  7. GLUCOSAMINE W/CHONDROITIN SULFATES [Concomitant]

REACTIONS (2)
  - HYPERBILIRUBINAEMIA [None]
  - MALAISE [None]
